FAERS Safety Report 6111786-2 (Version None)
Quarter: 2009Q1

REPORT INFORMATION
  Report Type: 
  Country: None (occurrence: None)
  Receive Date: 20090311
  Receipt Date: 20090303
  Transmission Date: 20090719
  Serious: Yes (Other)
  Sender: FDA-Public Use
  Company Number: DE-ABBOTT-09P-062-0560064-00

PATIENT
  Age: 60 Year
  Sex: Male

DRUGS (8)
  1. VALPROATE SODIUM [Suspect]
     Indication: EPILEPSY
     Route: 065
  2. LAMOTRIGINE [Interacting]
     Indication: EPILEPSY
     Route: 065
     Dates: start: 19940101, end: 20050501
  3. LAMOTRIGINE [Interacting]
     Route: 065
     Dates: start: 20050501, end: 20060501
  4. LAMOTRIGINE [Interacting]
     Route: 065
     Dates: start: 20060501, end: 20070401
  5. LAMOTRIGINE [Interacting]
     Route: 065
     Dates: start: 20070401, end: 20071101
  6. LAMOTRIGINE [Interacting]
     Route: 065
     Dates: start: 20071101
  7. OLANZAPINE [Interacting]
     Indication: PSYCHOTIC DISORDER
     Route: 065
  8. LORAZEPAM [Interacting]
     Indication: PSYCHOTIC DISORDER
     Route: 065

REACTIONS (2)
  - DRUG INTERACTION [None]
  - HALLUCINATION [None]
